FAERS Safety Report 8272908-0 (Version None)
Quarter: 2012Q2

REPORT INFORMATION
  Report Type: 
  Country: None (occurrence: None)
  Receive Date: 20120409
  Receipt Date: 20120409
  Transmission Date: 20120825
  Serious: Yes (Hospitalization)
  Sender: FDA-Public Use
  Company Number: None

PATIENT
  Age: 73 Year
  Sex: Male
  Weight: 70.5 kg

DRUGS (1)
  1. THROMBIN NOS [Suspect]
     Indication: PROCEDURAL HAEMORRHAGE
     Dates: start: 20110816, end: 20110816

REACTIONS (6)
  - CONVULSION [None]
  - ASPIRATION [None]
  - HYPOXIA [None]
  - VOMITING [None]
  - DEVICE MALFUNCTION [None]
  - ANAPHYLACTIC REACTION [None]
